FAERS Safety Report 9832645 (Version 2)
Quarter: 2014Q1

REPORT INFORMATION
  Report Type: Spontaneous
  Country: US (occurrence: US)
  Receive Date: 20140121
  Receipt Date: 20140130
  Transmission Date: 20141002
  Serious: Yes (Other)
  Sender: FDA-Public Use
  Company Number: US-009507513-1401USA005381

PATIENT
  Age: 32 Year
  Sex: Female

DRUGS (1)
  1. THERAPY UNSPECIFIED [Suspect]
     Indication: OSTEOSARCOMA
     Dosage: CONDUCTED 3 SESSIONS OF CHEMOTHERAPY, WITH AN INTERVAL OF 15 DAYS, WITH A DURATION OF 4 DAYS EACH

REACTIONS (1)
  - Osteosarcoma [Unknown]
